FAERS Safety Report 8401838-6 (Version None)
Quarter: 2012Q2

REPORT INFORMATION
  Report Type: 
  Country: None (occurrence: None)
  Receive Date: 20120601
  Receipt Date: 20120523
  Transmission Date: 20120825
  Serious: Yes (Other)
  Sender: FDA-Public Use
  Company Number: DE-JNJFOC-20120402001

PATIENT
  Sex: Female
  Weight: 83 kg

DRUGS (5)
  1. AMITRIPTYLINE HCL [Concomitant]
     Indication: PRODUCT USED FOR UNKNOWN INDICATION
     Dosage: 25-0-50MG
     Route: 065
  2. LEVOTHYROXINE SODIUM [Concomitant]
     Indication: PRODUCT USED FOR UNKNOWN INDICATION
     Route: 065
  3. TAPENTADOL HYDROCHLORIDE [Suspect]
     Indication: PERIPHERAL SENSORY NEUROPATHY
     Route: 048
     Dates: start: 20110923, end: 20120228
  4. KETOFEX [Concomitant]
     Indication: PRODUCT USED FOR UNKNOWN INDICATION
     Route: 065
  5. ACTOS [Concomitant]
     Indication: PRODUCT USED FOR UNKNOWN INDICATION
     Route: 061

REACTIONS (3)
  - ANXIETY [None]
  - CONFUSIONAL STATE [None]
  - DISORIENTATION [None]
